FAERS Safety Report 10069103 (Version 1)
Quarter: 2014Q2

REPORT INFORMATION
  Report Type: Spontaneous
  Country: US (occurrence: US)
  Receive Date: 20140409
  Receipt Date: 20140409
  Transmission Date: 20141212
  Serious: Yes (Hospitalization, Other)
  Sender: FDA-Public Use
  Company Number: US-ACTAVIS-2014-06964

PATIENT
  Age: 5 Day
  Sex: Male

DRUGS (2)
  1. ERYTHROMYCIN (WATSON LABORATORIES) [Suspect]
     Indication: INCLUSION CONJUNCTIVITIS NEONATAL
     Dosage: 50 MG/KG, DAILY (DIVIDED IN 4 DOSES)
     Route: 048
  2. ERYTHROMYCIN [Concomitant]
     Indication: INCLUSION CONJUNCTIVITIS NEONATAL
     Dosage: UNKNOWN, EYE OINTMENT
     Route: 061

REACTIONS (1)
  - Obstruction gastric [Recovered/Resolved]
